FAERS Safety Report 9759685 (Version 1)
Quarter: 2013Q4

REPORT INFORMATION
  Report Type: Spontaneous
  Country: MA (occurrence: MA)
  Receive Date: 20131216
  Receipt Date: 20131216
  Transmission Date: 20140711
  Serious: Yes (Hospitalization)
  Sender: FDA-Public Use
  Company Number: MA-MYLANLABS-2013S1027290

PATIENT
  Age: 27 Year
  Sex: Female

DRUGS (1)
  1. AMLODIPINE [Suspect]
     Indication: OVERDOSE
     Route: 048

REACTIONS (4)
  - Hypotension [Recovering/Resolving]
  - Toxicity to various agents [Recovering/Resolving]
  - Overdose [Recovering/Resolving]
  - Suicide attempt [Recovering/Resolving]
